FAERS Safety Report 6253832-1 (Version None)
Quarter: 2009Q2

REPORT INFORMATION
  Report Type: 
  Country: None (occurrence: None)
  Receive Date: 20090630
  Receipt Date: 20090630
  Transmission Date: 20091009
  Serious: No
  Sender: FDA-Public Use
  Company Number: None

PATIENT
  Sex: Female

DRUGS (2)
  1. FENTANYL TRANSDERMAL SYSTEM [Suspect]
     Dosage: 100 MCG Q48 TD
     Route: 062
     Dates: start: 20040701, end: 20040801
  2. FENTANYL TRANSDERMAL SYSTEM [Suspect]
     Dosage: 25 MCG Q 48 TD
     Route: 062

REACTIONS (3)
  - DERMATITIS CONTACT [None]
  - PRODUCT QUALITY ISSUE [None]
  - PRODUCT SUBSTITUTION ISSUE [None]
